FAERS Safety Report 6417961-1 (Version None)
Quarter: 2009Q4

REPORT INFORMATION
  Report Type: 
  Country: None (occurrence: None)
  Receive Date: 20091026
  Receipt Date: 20091013
  Transmission Date: 20100525
  Serious: Yes (Other)
  Sender: FDA-Public Use
  Company Number: ADR38742009

PATIENT
  Age: 90 Year
  Sex: Female

DRUGS (5)
  1. SIMVASTATIN [Suspect]
     Indication: CEREBROVASCULAR ACCIDENT PROPHYLAXIS
     Dosage: 40 MG
     Dates: start: 20080604, end: 20080607
  2. ASPIRIN [Concomitant]
  3. CO-CODAMOL [Concomitant]
  4. LOSARTAN (50MG) [Concomitant]
  5. SENNA (7.5MG) [Concomitant]

REACTIONS (3)
  - LIP OEDEMA [None]
  - OEDEMA MOUTH [None]
  - TONGUE OEDEMA [None]
